FAERS Safety Report 9690455 (Version 1)
Quarter: 2013Q4

REPORT INFORMATION
  Report Type: Spontaneous
  Country: US (occurrence: None)
  Receive Date: 20131114
  Receipt Date: 20131114
  Transmission Date: 20140711
  Serious: Yes (Other)
  Sender: FDA-Public Use
  Company Number: None

PATIENT
  Sex: Male
  Weight: 91.7 kg

DRUGS (4)
  1. GADOPENTETATE DIMEGLUMINE [Suspect]
     Indication: IMAGING PROCEDURE
     Dates: start: 20130821
  2. OLMESARTAN [Concomitant]
  3. FISH OIL [Concomitant]
  4. VITAMIN D [Concomitant]

REACTIONS (8)
  - Dyspnoea [None]
  - Pruritus [None]
  - Urticaria [None]
  - Hypertension [None]
  - Heart rate decreased [None]
  - Somnolence [None]
  - Refusal of treatment by patient [None]
  - Contrast media reaction [None]
